FAERS Safety Report 5237771-0 (Version None)
Quarter: 2007Q1

REPORT INFORMATION
  Report Type: 
  Country: None (occurrence: None)
  Receive Date: 20070214
  Receipt Date: 20070209
  Transmission Date: 20070707
  Serious: Yes (Hospitalization)
  Sender: FDA-Public Use
  Company Number: JP-JPN-A200700422

PATIENT
  Age: 87 Year
  Sex: Male

DRUGS (2)
  1. ZANTAC [Suspect]
     Dosage: 50MG FOUR TIMES PER DAY
     Route: 042
     Dates: start: 20070123, end: 20070201
  2. BISOLVON [Concomitant]
     Dosage: 4MG TWICE PER DAY

REACTIONS (3)
  - ALANINE AMINOTRANSFERASE INCREASED [None]
  - ASPARTATE AMINOTRANSFERASE INCREASED [None]
  - LIVER DISORDER [None]
